FAERS Safety Report 25741920 (Version 2)
Quarter: 2025Q3

REPORT INFORMATION
  Report Type: Report from Study
  Country: CA (occurrence: CA)
  Receive Date: 20250829
  Receipt Date: 20250924
  Transmission Date: 20251020
  Serious: Yes (Other)
  Sender: ABBVIE
  Company Number: CA-ABBVIE-6435357

PATIENT
  Sex: Female

DRUGS (1)
  1. RINVOQ [Suspect]
     Active Substance: UPADACITINIB
     Indication: Product used for unknown indication
     Dosage: FORM STRENGTH 30MG
     Route: 048
     Dates: start: 20220902

REACTIONS (3)
  - Appendix cancer [Recovering/Resolving]
  - Appendiceal abscess [Recovering/Resolving]
  - Pseudomyxoma peritonei [Unknown]
